FAERS Safety Report 21315109 (Version 1)
Quarter: 2022Q3

REPORT INFORMATION
  Report Type: Spontaneous
  Country: US (occurrence: US)
  Receive Date: 20220909
  Receipt Date: 20220909
  Transmission Date: 20221027
  Serious: Yes (Other)
  Sender: FDA-Public Use
  Company Number: US-PFIZER INC-PV202200007933

PATIENT
  Age: 79 Year
  Sex: Female
  Weight: 50.34 kg

DRUGS (2)
  1. MEKTOVI [Suspect]
     Active Substance: BINIMETINIB
     Indication: Colon cancer metastatic
     Dosage: 15 MG
  2. MEKTOVI [Suspect]
     Active Substance: BINIMETINIB
     Dosage: 375 MG, 2X/DAY
     Dates: start: 202109, end: 202209

REACTIONS (5)
  - Dental discomfort [Unknown]
  - Fatigue [Not Recovered/Not Resolved]
  - Nausea [Recovered/Resolved]
  - Rash [Not Recovered/Not Resolved]
  - Pain in extremity [Not Recovered/Not Resolved]
